FAERS Safety Report 25526176 (Version 1)
Quarter: 2025Q3

REPORT INFORMATION
  Report Type: Spontaneous
  Country: US (occurrence: US)
  Receive Date: 20250707
  Receipt Date: 20250707
  Transmission Date: 20251021
  Serious: No
  Sender: SANOFI AVENTIS
  Company Number: US-SA-2025SA190501

PATIENT
  Sex: Female

DRUGS (6)
  1. DUPIXENT [Suspect]
     Active Substance: DUPILUMAB
     Indication: Dermatitis atopic
     Dosage: INJECT 1 PEN (300 MG) UNDER THE SKIN (SUBCUTANEOUS INJECTION) EVERY 2 WEEKS
     Route: 058
     Dates: start: 20240412
  2. ALBUTEROL SULFATE [Concomitant]
     Active Substance: ALBUTEROL SULFATE
  3. EPINEPHRINE [Concomitant]
     Active Substance: EPINEPHRINE
  4. FERROUS SULFATE [Concomitant]
     Active Substance: FERROUS SULFATE
  5. MIRENA [Concomitant]
     Active Substance: LEVONORGESTREL
     Route: 015
  6. VITAMIN D [Concomitant]
     Active Substance: VITAMIN D NOS

REACTIONS (4)
  - Dermatitis atopic [Unknown]
  - Discomfort [Unknown]
  - Rash [Unknown]
  - Dry skin [Unknown]
